FAERS Safety Report 9796190 (Version 1)
Quarter: 2014Q1

REPORT INFORMATION
  Report Type: Spontaneous
  Country: US (occurrence: US)
  Receive Date: 20140103
  Receipt Date: 20140103
  Transmission Date: 20141002
  Serious: Yes (Other)
  Sender: FDA-Public Use
  Company Number: US-PFIZER INC-2014000104

PATIENT
  Age: 61 Year
  Sex: Female
  Weight: 68.03 kg

DRUGS (2)
  1. LEVOXYL [Suspect]
     Indication: THYROID DISORDER
     Dosage: 0.112 UG, 1X/DAY
     Dates: end: 2013
  2. LEVOXYL [Suspect]
     Indication: AUTOIMMUNE THYROIDITIS

REACTIONS (2)
  - Thyroid neoplasm [Unknown]
  - Disease progression [Unknown]
